FAERS Safety Report 5586975-6 (Version None)
Quarter: 2008Q1

REPORT INFORMATION
  Report Type: 
  Country: None (occurrence: None)
  Receive Date: 20080107
  Receipt Date: 20071221
  Transmission Date: 20080703
  Serious: Yes (Disabling)
  Sender: FDA-Public Use
  Company Number: 2007002532

PATIENT
  Age: 57 Year
  Sex: Female

DRUGS (1)
  1. TARCEVA [Suspect]
     Indication: OVARIAN CANCER
     Dosage: (QD), ORAL
     Route: 048
     Dates: start: 20070607

REACTIONS (1)
  - CATARACT [None]
